FAERS Safety Report 7139485-9 (Version None)
Quarter: 2010Q4

REPORT INFORMATION
  Report Type: 
  Country: None (occurrence: None)
  Receive Date: 20101206
  Receipt Date: 20101125
  Transmission Date: 20110411
  Serious: Yes (Death, Congenital Anomaly)
  Sender: FDA-Public Use
  Company Number: FR-PFIZER INC-2010157767

PATIENT
  Sex: Female
  Weight: 1100 kg

DRUGS (1)
  1. EFFEXOR XR [Suspect]
     Dosage: UNK
     Route: 064
     Dates: start: 20090101, end: 20100401

REACTIONS (2)
  - DRUG EXPOSURE DURING PREGNANCY [None]
  - MULTIPLE CONGENITAL ABNORMALITIES [None]
